FAERS Safety Report 4404661-2 (Version None)
Quarter: 2004Q3

REPORT INFORMATION
  Report Type: 
  Country: None (occurrence: None)
  Receive Date: 20040721
  Receipt Date: 20040721
  Transmission Date: 20050211
  Serious: Yes (Life-Threatening)
  Sender: FDA-Public Use
  Company Number: None

PATIENT
  Age: 65 Year
  Sex: Male
  Weight: 132.9039 kg

DRUGS (2)
  1. ACETAMINOPHEN AND HYDROCODONE BITARTRATE [Suspect]
     Dosage: 2 TIMES PER DAY
  2. ALTACE [Suspect]
     Dosage: 1 TIME PER DAY

REACTIONS (2)
  - FEELING ABNORMAL [None]
  - VOMITING [None]
